FAERS Safety Report 24633999 (Version 2)
Quarter: 2024Q4

REPORT INFORMATION
  Report Type: Spontaneous
  Country: US (occurrence: US)
  Receive Date: 20241118
  Receipt Date: 20241220
  Transmission Date: 20250114
  Serious: No
  Sender: SANOFI AVENTIS
  Company Number: US-SA-2024SA330051

PATIENT
  Age: 33 Year
  Sex: Male

DRUGS (6)
  1. DUPIXENT [Suspect]
     Active Substance: DUPILUMAB
     Indication: Nasal polyps
     Dosage: 300 MG, QOW
     Route: 058
     Dates: start: 202206
  2. DUPIXENT [Suspect]
     Active Substance: DUPILUMAB
     Indication: Rhinitis
  3. FLONASE ALLERGY RELIEF [Concomitant]
     Active Substance: FLUTICASONE PROPIONATE
     Indication: Rhinitis
     Dosage: 50 UG, QM
  4. MUPIROCIN [Concomitant]
     Active Substance: MUPIROCIN
     Dosage: UNK UNK, BID
  5. PEPCID [Concomitant]
     Active Substance: FAMOTIDINE
     Dosage: 1 DF, QD
     Route: 048
  6. PREDNISONE [Concomitant]
     Active Substance: PREDNISONE
     Dosage: 6 DF, QD
     Route: 048

REACTIONS (8)
  - Sinus disorder [Unknown]
  - Product dose omission issue [Unknown]
  - Condition aggravated [Unknown]
  - Dry skin [Unknown]
  - Pyrexia [Unknown]
  - Hypoacusis [Not Recovered/Not Resolved]
  - Ear discomfort [Unknown]
  - Erythema [Unknown]

NARRATIVE: CASE EVENT DATE: 20241001
